FAERS Safety Report 11642007 (Version 4)
Quarter: 2015Q4

REPORT INFORMATION
  Report Type: Report from Study
  Country: US (occurrence: US)
  Receive Date: 20151019
  Receipt Date: 20151230
  Transmission Date: 20160304
  Serious: Yes (Hospitalization)
  Sender: FDA-Public Use
  Company Number: US-B.I. PHARMACEUTICALS,INC./RIDGEFIELD-2015-BI-49545BP

PATIENT
  Sex: Female

DRUGS (3)
  1. OFEV [Suspect]
     Active Substance: NINTEDANIB
     Indication: IDIOPATHIC PULMONARY FIBROSIS
     Dosage: 200 MG
     Route: 048
     Dates: start: 20150727
  2. OFEV [Suspect]
     Active Substance: NINTEDANIB
     Dosage: 300 MG
     Route: 048
  3. WARFARIN [Concomitant]
     Active Substance: WARFARIN
     Indication: PRODUCT USED FOR UNKNOWN INDICATION
     Route: 065

REACTIONS (10)
  - Diarrhoea [Unknown]
  - Abdominal distension [Unknown]
  - Cough [Unknown]
  - Dyspnoea [Unknown]
  - Atrial fibrillation [Unknown]
  - Decreased appetite [Unknown]
  - Flatulence [Unknown]
  - Weight decreased [Unknown]
  - Pneumonia [Unknown]
  - Dizziness [Unknown]
